FAERS Safety Report 21040647 (Version 1)
Quarter: 2022Q3

REPORT INFORMATION
  Report Type: Spontaneous
  Country: US (occurrence: US)
  Receive Date: 20220704
  Receipt Date: 20220704
  Transmission Date: 20221027
  Serious: Yes (Hospitalization)
  Sender: FDA-Public Use
  Company Number: US-SA-SAC20220701001139

PATIENT
  Sex: Female

DRUGS (2)
  1. DUPIXENT [Suspect]
     Active Substance: DUPILUMAB
  2. REMICADE [Suspect]
     Active Substance: INFLIXIMAB

REACTIONS (4)
  - Illness [Unknown]
  - Arthritis [Unknown]
  - Asthenia [Unknown]
  - Fatigue [Unknown]
